FAERS Safety Report 9067244 (Version 1)
Quarter: 2013Q1

REPORT INFORMATION
  Report Type: Report from Study
  Country: US (occurrence: US)
  Receive Date: 20130131
  Receipt Date: 20130131
  Transmission Date: 20140127
  Serious: No
  Sender: FDA-Public Use
  Company Number: US-ABBOTT-12P-163-0999304-00

PATIENT
  Age: 51 Year
  Sex: Female

DRUGS (7)
  1. HUMIRA [Suspect]
     Indication: PSORIATIC ARTHROPATHY
     Dates: start: 20100802
  2. METHOTREXATE [Concomitant]
     Indication: PSORIATIC ARTHROPATHY
     Dosage: 6 PILLS WEEKLY
  3. CRESTOR [Concomitant]
     Indication: BLOOD CHOLESTEROL INCREASED
     Dosage: DAILY
  4. SYNTHROID [Concomitant]
     Indication: HYPOTHYROIDISM
     Dosage: DAILY
  5. UNKNOWN PAIN PILL [Concomitant]
     Indication: PAIN
     Dosage: HAS NOT HAD TO USE MUCH LATELY
  6. ENTOCORT [Concomitant]
     Indication: CROHN^S DISEASE
     Dosage: 3 PILLS DAILY
  7. B 12 [Concomitant]
     Indication: PRODUCT USED FOR UNKNOWN INDICATION
     Dosage: WEEKLY

REACTIONS (2)
  - Device malfunction [Recovering/Resolving]
  - Incorrect dose administered [Recovering/Resolving]
